FAERS Safety Report 5771126-5 (Version None)
Quarter: 2008Q2

REPORT INFORMATION
  Report Type: 
  Country: None (occurrence: None)
  Receive Date: 20080613
  Receipt Date: 20080520
  Transmission Date: 20081010
  Serious: No
  Sender: FDA-Public Use
  Company Number: US-ABBOTT-08P-163-0453989-00

PATIENT
  Sex: Female
  Weight: 72.64 kg

DRUGS (13)
  1. HUMIRA [Suspect]
     Indication: RHEUMATOID ARTHRITIS
     Route: 058
  2. HUMIRA [Suspect]
     Dates: start: 20040101, end: 20080201
  3. METHOTREXATE [Concomitant]
     Indication: RHEUMATOID ARTHRITIS
     Route: 050
     Dates: start: 19930101
  4. COMBIVENT [Concomitant]
     Indication: CHRONIC OBSTRUCTIVE PULMONARY DISEASE
     Dosage: NEBULIZER
     Dates: start: 20080201
  5. BUDESONIDE [Concomitant]
     Indication: CHRONIC OBSTRUCTIVE PULMONARY DISEASE
     Dosage: NEBULIZER
     Dates: start: 20080201
  6. AMITRIPTYLINE HYDROCHLORIDE [Concomitant]
     Indication: PANIC ATTACK
     Route: 048
     Dates: start: 19960101
  7. SERTRALINE [Concomitant]
     Indication: ANXIETY
     Route: 048
     Dates: start: 19960101
  8. SULINBAC [Concomitant]
     Indication: RHEUMATOID ARTHRITIS
     Route: 048
     Dates: start: 19970101
  9. FOLIC ACID [Concomitant]
     Indication: MEDICAL DIET
     Route: 048
     Dates: start: 19960101
  10. MULTI-VITAMIN [Concomitant]
     Indication: VITAMIN SUPPLEMENTATION
     Route: 048
     Dates: start: 19930101
  11. ALENDRONATE SODIUM [Concomitant]
     Indication: OSTEOPOROSIS
     Route: 048
     Dates: start: 20040101
  12. BRINZOLAMIDE [Concomitant]
     Indication: GLAUCOMA
     Dates: start: 20070101
  13. TRAVOPROST [Concomitant]
     Indication: GLAUCOMA
     Dates: start: 20070101

REACTIONS (1)
  - BRONCHITIS [None]
